FAERS Safety Report 15943905 (Version 1)
Quarter: 2019Q1

REPORT INFORMATION
  Report Type: Spontaneous
  Country: US (occurrence: US)
  Receive Date: 20190118
  Receipt Date: 20190118
  Transmission Date: 20190417
  Serious: No
  Sender: FDA-Public Use
  Company Number: None

PATIENT
  Age: 38 Year
  Sex: Female

DRUGS (2)
  1. AMOXICILLIN. [Concomitant]
     Active Substance: AMOXICILLIN
  2. COSENTYX [Suspect]
     Active Substance: SECUKINUMAB
     Dates: start: 201801

REACTIONS (2)
  - Inappropriate schedule of product administration [None]
  - Sinusitis [None]

NARRATIVE: CASE EVENT DATE: 20190114
